FAERS Safety Report 8350641-4 (Version None)
Quarter: 2012Q2

REPORT INFORMATION
  Report Type: 
  Country: None (occurrence: None)
  Receive Date: 20120510
  Receipt Date: 20120502
  Transmission Date: 20120825
  Serious: Yes (Hospitalization)
  Sender: FDA-Public Use
  Company Number: FR-BAYER-2012-043057

PATIENT
  Age: 19 Year
  Sex: Female

DRUGS (3)
  1. GARDASIL [Suspect]
     Indication: IMMUNISATION
     Dosage: UNK
     Route: 030
     Dates: start: 20110401, end: 20110401
  2. DROSPIRENONE AND ETHINYL ESTRADIOL [Suspect]
     Dosage: 1 DF, QD
     Route: 048
     Dates: start: 20110701, end: 20111001
  3. GARDASIL [Suspect]
     Dosage: UNK, ONCE
     Dates: start: 20110601, end: 20110601

REACTIONS (2)
  - IDIOPATHIC THROMBOCYTOPENIC PURPURA [None]
  - ECCHYMOSIS [None]
